FAERS Safety Report 7591962-2 (Version None)
Quarter: 2011Q3

REPORT INFORMATION
  Report Type: 
  Country: None (occurrence: None)
  Receive Date: 20110701
  Receipt Date: 20110701
  Transmission Date: 20111222
  Serious: No
  Sender: FDA-Public Use
  Company Number: None

PATIENT
  Age: 51 Year
  Sex: Female
  Weight: 88.905 kg

DRUGS (1)
  1. CELEBREX [Suspect]
     Indication: HAEMATOMA
     Dosage: 200MG DAILY
     Dates: start: 20110309, end: 20110322

REACTIONS (13)
  - INJURY [None]
  - EUSTACHIAN TUBE DISORDER [None]
  - PRURITUS [None]
  - HYPERTENSION [None]
  - EAR DISCOMFORT [None]
  - DIZZINESS [None]
  - WEIGHT INCREASED [None]
  - HOT FLUSH [None]
  - BLOOD CHOLESTEROL INCREASED [None]
  - ANXIETY [None]
  - DYSPNOEA [None]
  - CONFUSIONAL STATE [None]
  - TINNITUS [None]
